FAERS Safety Report 9563268 (Version 1)
Quarter: 2013Q3

REPORT INFORMATION
  Report Type: Spontaneous
  Country: US (occurrence: US)
  Receive Date: 20130927
  Receipt Date: 20130927
  Transmission Date: 20140515
  Serious: No
  Sender: FDA-Public Use
  Company Number: US-009507513-1309USA005811

PATIENT
  Sex: 0

DRUGS (1)
  1. NUVARING [Suspect]
     Indication: SKIN DISORDER
     Route: 067

REACTIONS (2)
  - Libido decreased [Unknown]
  - Off label use [Unknown]
